FAERS Safety Report 4881225-8 (Version None)
Quarter: 2005Q4

REPORT INFORMATION
  Report Type: 
  Country: None (occurrence: None)
  Receive Date: 20051212
  Receipt Date: 20051020
  Transmission Date: 20060501
  Serious: Yes (Other)
  Sender: FDA-Public Use
  Company Number: 2005-00177

PATIENT
  Age: 64 Year
  Sex: Female
  Weight: 67.6 kg

DRUGS (7)
  1. VELCADE [Suspect]
     Indication: MULTIPLE MYELOMA
     Dosage: 1.30 MG/M2, 2/WEEK, INTRAVENOUS; SEE IMAGE
     Route: 042
     Dates: start: 20040802, end: 20041104
  2. VELCADE [Suspect]
     Indication: MULTIPLE MYELOMA
     Dosage: 1.30 MG/M2, 2/WEEK, INTRAVENOUS; SEE IMAGE
     Route: 042
     Dates: start: 20041129, end: 20041209
  3. POTASSIUM CHLORIDE [Concomitant]
  4. HYDROCHLOROTHIAZIDE [Concomitant]
  5. OXYCONTIN [Concomitant]
  6. PAXIL [Concomitant]
  7. MULTIVITAMIN [Concomitant]

REACTIONS (7)
  - BUNDLE BRANCH BLOCK LEFT [None]
  - CARDIOMYOPATHY [None]
  - DEHYDRATION [None]
  - DIZZINESS [None]
  - DYSPNOEA [None]
  - EJECTION FRACTION DECREASED [None]
  - ORTHOSTATIC HYPOTENSION [None]
